FAERS Safety Report 6616768-X (Version None)
Quarter: 2010Q1

REPORT INFORMATION
  Report Type: 
  Country: None (occurrence: None)
  Receive Date: 20100305
  Receipt Date: 20100225
  Transmission Date: 20100710
  Serious: Yes (Other)
  Sender: FDA-Public Use
  Company Number: US-PFIZER INC-2010025542

PATIENT
  Sex: Female
  Weight: 84.354 kg

DRUGS (14)
  1. LIPITOR [Suspect]
     Indication: BLOOD CHOLESTEROL INCREASED
     Dosage: 20 MG, 1X/DAY
     Route: 048
     Dates: start: 20030601
  2. LIPITOR [Suspect]
     Dosage: 10 MG, 1X/DAY
     Dates: start: 19890101
  3. ACTOS [Concomitant]
     Indication: DIABETES PROPHYLAXIS
     Dosage: 30 MG, UNK
  4. AMITRIPTYLINE [Concomitant]
     Dosage: 100 MG, UNK
  5. HYDROCHLOROTHIAZIDE [Concomitant]
     Dosage: 12.5 MG, UNK
  6. PROTONIX [Concomitant]
     Dosage: 40 MG, UNK
  7. SUCRALFATE [Concomitant]
     Dosage: 1 G, UNK
  8. ACETAMINOPHEN [Concomitant]
     Dosage: 500 MG, 2X/DAY
  9. ACETYLSALICYLIC ACID [Concomitant]
     Dosage: 81 MG, UNK
  10. VITAMIN C [Concomitant]
     Dosage: 500 MG, UNK
  11. MULTI-VITAMINS [Concomitant]
     Dosage: UNK/ 1X DAY
  12. GLUCOSAMINE [Concomitant]
     Dosage: UNK
  13. VITAMIN D [Concomitant]
     Dosage: 1000 MG, 1X/DAY
  14. CITRACAL [Concomitant]
     Dosage: 400 MG, UNK

REACTIONS (2)
  - BREAST CANCER [None]
  - HYPOTHYROIDISM [None]
